FAERS Safety Report 22143170 (Version 1)
Quarter: 2023Q1

REPORT INFORMATION
  Report Type: Report from Study
  Country: US (occurrence: US)
  Receive Date: 20230327
  Receipt Date: 20230327
  Transmission Date: 20230418
  Serious: Yes (Death, Hospitalization, Other)
  Sender: FDA-Public Use
  Company Number: US-002147023-PHHO2013US011499

PATIENT
  Age: 67 Year
  Sex: Female
  Weight: 61.31 kg

DRUGS (9)
  1. ENCORAFENIB [Suspect]
     Active Substance: ENCORAFENIB
     Indication: Malignant melanoma
     Dosage: 300 MG, 1X/DAY
     Route: 048
     Dates: start: 20130903, end: 20130903
  2. ENCORAFENIB [Suspect]
     Active Substance: ENCORAFENIB
     Dosage: 300 MG, 1X/DAY
     Route: 048
     Dates: start: 20130905, end: 20130914
  3. RIBOCICLIB [Suspect]
     Active Substance: RIBOCICLIB
     Indication: Malignant melanoma
     Dosage: 200 MG, 1X/DAY
     Route: 048
     Dates: start: 20130903, end: 20130903
  4. RIBOCICLIB [Suspect]
     Active Substance: RIBOCICLIB
     Dosage: 200 MG, 1X/DAY
     Route: 048
     Dates: start: 20130905, end: 20130914
  5. VANCOMYCIN HYDROCHLORIDE [Suspect]
     Active Substance: VANCOMYCIN HYDROCHLORIDE
     Dosage: 1000 MG, 1X/DAY
     Route: 042
     Dates: start: 20130916, end: 20130920
  6. AUGMENTIN [Suspect]
     Active Substance: AMOXICILLIN\CLAVULANATE POTASSIUM
     Indication: Product used for unknown indication
     Dosage: 1 DF, 2X/DAY
     Dates: start: 20130918, end: 20130920
  7. OXYCODONE [Concomitant]
     Active Substance: OXYCODONE
     Indication: Neck pain
     Dosage: 10 MG. Q4H
     Dates: start: 20130829, end: 20130903
  8. OXYCONTIN [Concomitant]
     Active Substance: OXYCODONE HYDROCHLORIDE
     Indication: Neck pain
     Dosage: 40 MG, 2X/DAY
     Dates: start: 20130829, end: 20130904
  9. POTASSIUM [Concomitant]
     Active Substance: POTASSIUM
     Indication: Hypokalaemia
     Dosage: 40 MG, 2X/DAY
     Dates: start: 20130903, end: 20130903

REACTIONS (5)
  - Systemic inflammatory response syndrome [Fatal]
  - Transaminases increased [Not Recovered/Not Resolved]
  - Neck pain [Not Recovered/Not Resolved]
  - Nausea [Recovered/Resolved]
  - Pneumonia [Not Recovered/Not Resolved]

NARRATIVE: CASE EVENT DATE: 20130903
